FAERS Safety Report 6463172-3 (Version None)
Quarter: 2009Q4

REPORT INFORMATION
  Report Type: 
  Country: None (occurrence: None)
  Receive Date: 20091123
  Receipt Date: 20091109
  Transmission Date: 20100525
  Serious: Yes (Death)
  Sender: FDA-Public Use
  Company Number: 2009AC000378

PATIENT
  Age: 46 Year
  Sex: Female

DRUGS (3)
  1. DIGOXIN [Suspect]
     Dosage: 0.25 MG; PO
     Route: 048
  2. TOPROL-XL [Concomitant]
  3. CARISOPRODOL [Concomitant]

REACTIONS (4)
  - ECONOMIC PROBLEM [None]
  - INJURY [None]
  - RESTRICTIVE PULMONARY DISEASE [None]
  - SURGERY [None]
